FAERS Safety Report 17446468 (Version 1)
Quarter: 2020Q1

REPORT INFORMATION
  Report Type: Spontaneous
  Country: US (occurrence: US)
  Receive Date: 20200221
  Receipt Date: 20200221
  Transmission Date: 20200409
  Serious: Yes (Life-Threatening, Other)
  Sender: FDA-Public Use
  Company Number: US-MYLANLABS-2020M1019780

PATIENT
  Sex: Male

DRUGS (1)
  1. EPINEPHRINE INJECTION USP AUTO-INJECTOR [Suspect]
     Active Substance: EPINEPHRINE
     Indication: ANAPHYLACTIC SHOCK
     Dosage: AS NEEDED
     Route: 058

REACTIONS (1)
  - Device failure [Not Recovered/Not Resolved]
